FAERS Safety Report 10915389 (Version 1)
Quarter: 2015Q1

REPORT INFORMATION
  Report Type: Spontaneous
  Country: US (occurrence: US)
  Receive Date: 20150316
  Receipt Date: 20150316
  Transmission Date: 20150721
  Serious: No
  Sender: FDA-Public Use
  Company Number: US-BIOGENIDEC-2014BI002146

PATIENT
  Age: 59 Year
  Sex: Female
  Weight: 61 kg

DRUGS (19)
  1. AMPYRA [Concomitant]
     Active Substance: DALFAMPRIDINE
     Indication: GAIT DISTURBANCE
     Route: 048
  2. NAPROSYN [Concomitant]
     Active Substance: NAPROXEN
  3. VITAMIN D [Concomitant]
     Active Substance: CHOLECALCIFEROL
  4. EFFEXOR XR [Concomitant]
     Active Substance: VENLAFAXINE HYDROCHLORIDE
  5. AMPYRA [Concomitant]
     Active Substance: DALFAMPRIDINE
     Indication: GAIT DISTURBANCE
     Route: 048
     Dates: start: 201310
  6. BACLOFEN. [Concomitant]
     Active Substance: BACLOFEN
  7. BACLOFEN. [Concomitant]
     Active Substance: BACLOFEN
  8. MESTINON [Concomitant]
     Active Substance: PYRIDOSTIGMINE BROMIDE
  9. CALCIUM [Concomitant]
     Active Substance: CALCIUM
  10. MACRODANTIN [Concomitant]
     Active Substance: NITROFURANTOIN
  11. DITROPAN XL [Concomitant]
     Active Substance: OXYBUTYNIN CHLORIDE
  12. TECFIDERA [Suspect]
     Active Substance: DIMETHYL FUMARATE
     Indication: MULTIPLE SCLEROSIS
     Route: 048
     Dates: start: 20131217
  13. AMPYRA [Concomitant]
     Active Substance: DALFAMPRIDINE
     Indication: GAIT DISTURBANCE
     Dates: start: 201309
  14. AMPYRA [Concomitant]
     Active Substance: DALFAMPRIDINE
     Indication: GAIT DISTURBANCE
     Route: 048
     Dates: start: 20130925, end: 20131028
  15. EFFEXOR XR [Concomitant]
     Active Substance: VENLAFAXINE HYDROCHLORIDE
  16. REBIF [Concomitant]
     Active Substance: INTERFERON BETA-1A
     Dates: end: 201312
  17. MACRODANTIN [Concomitant]
     Active Substance: NITROFURANTOIN
  18. EFFEXOR XR [Concomitant]
     Active Substance: VENLAFAXINE HYDROCHLORIDE
  19. MACRODANTIN [Concomitant]
     Active Substance: NITROFURANTOIN

REACTIONS (8)
  - Diarrhoea [Recovered/Resolved]
  - Urinary tract infection [Unknown]
  - Flushing [Not Recovered/Not Resolved]
  - Dizziness [Unknown]
  - Abdominal pain upper [Unknown]
  - Dysstasia [Unknown]
  - Balance disorder [Unknown]
  - Fall [Unknown]

NARRATIVE: CASE EVENT DATE: 20131217
